FAERS Safety Report 7529719-0 (Version None)
Quarter: 2011Q2

REPORT INFORMATION
  Report Type: 
  Country: None (occurrence: None)
  Receive Date: 20110607
  Receipt Date: 20110601
  Transmission Date: 20111010
  Serious: Yes (Other)
  Sender: FDA-Public Use
  Company Number: B0723320A

PATIENT
  Sex: Female

DRUGS (4)
  1. OXAZEPAM [Suspect]
     Indication: PRODUCT USED FOR UNKNOWN INDICATION
     Route: 048
     Dates: start: 20090101
  2. MEPRONIZINE [Suspect]
     Indication: PRODUCT USED FOR UNKNOWN INDICATION
     Route: 048
     Dates: start: 20090101, end: 20110112
  3. CRESTOR [Concomitant]
     Dosage: 5MG PER DAY
     Route: 048
     Dates: start: 20110107, end: 20110118
  4. PAROXETINE HCL [Suspect]
     Indication: PRODUCT USED FOR UNKNOWN INDICATION
     Route: 048
     Dates: start: 20090101

REACTIONS (2)
  - FALL [None]
  - SEDATION [None]
